FAERS Safety Report 9216693 (Version 4)
Quarter: 2013Q2

REPORT INFORMATION
  Report Type: Report from Study
  Country: US (occurrence: US)
  Receive Date: 20130408
  Receipt Date: 20130607
  Transmission Date: 20140414
  Serious: Yes (Hospitalization, Other)
  Sender: FDA-Public Use
  Company Number: US-VERTEX PHARMACEUTICALS INC.-2013-004513

PATIENT
  Age: 59 Year
  Sex: Female
  Weight: 115 kg

DRUGS (12)
  1. VX-950 (TELAPREVIR) [Suspect]
     Indication: HEPATITIS C
     Dosage: 750 MG, TID
     Route: 048
     Dates: start: 20130330, end: 20130513
  2. RIBAVIRIN [Suspect]
     Indication: HEPATITIS C
     Dosage: 600 MG, BID
     Dates: start: 20130330
  3. RIBAVIRIN [Suspect]
     Dosage: 200 MG, BID
     Route: 048
     Dates: start: 201304, end: 20130513
  4. PEGASYS [Suspect]
     Indication: HEPATITIS C
     Dosage: 180 ?G, WEEKLY
     Route: 058
     Dates: start: 20130330, end: 20130513
  5. CLONIDINE [Concomitant]
     Indication: DEPRESSION
  6. CELEXA [Concomitant]
     Indication: DEPRESSION
     Dosage: 40 MG, QD
  7. AMBIEN [Concomitant]
     Dosage: 10 MG, UNK
  8. CLONAZEPAM [Concomitant]
     Dosage: UNK, TID
  9. LORTAB [Concomitant]
  10. NEURONTIN [Concomitant]
     Dosage: UNK, QID
  11. PANTOPRAZOLE [Concomitant]
     Dosage: UNK, QD
  12. SYMBICORT [Concomitant]

REACTIONS (17)
  - Pneumonia [Unknown]
  - Depression [Not Recovered/Not Resolved]
  - Anaemia [Not Recovered/Not Resolved]
  - Diverticulitis [Unknown]
  - Dyspnoea [Unknown]
  - Bronchitis [Unknown]
  - Urinary tract infection [Not Recovered/Not Resolved]
  - Pyrexia [Not Recovered/Not Resolved]
  - Abdominal pain [Unknown]
  - Pain [Not Recovered/Not Resolved]
  - Constipation [Not Recovered/Not Resolved]
  - Malaise [Unknown]
  - Agitation [Unknown]
  - Nausea [Not Recovered/Not Resolved]
  - Vomiting [Not Recovered/Not Resolved]
  - Diarrhoea [Not Recovered/Not Resolved]
  - Pruritus [Recovered/Resolved]
